FAERS Safety Report 7809713-2 (Version None)
Quarter: 2011Q4

REPORT INFORMATION
  Report Type: 
  Country: None (occurrence: None)
  Receive Date: 20111012
  Receipt Date: 20111003
  Transmission Date: 20120403
  Serious: Yes (Hospitalization)
  Sender: FDA-Public Use
  Company Number: FR-GLAXOSMITHKLINE-B0752301A

PATIENT
  Sex: Female

DRUGS (7)
  1. AUGMENTIN '125' [Concomitant]
     Route: 065
     Dates: start: 20110501
  2. LAMICTAL [Suspect]
     Indication: BIPOLAR DISORDER
     Route: 048
     Dates: start: 20110401
  3. VALPROIC ACID [Concomitant]
     Route: 065
  4. ACETAMINOPHEN [Concomitant]
     Route: 065
     Dates: start: 20110501
  5. LOXAPINE HCL [Concomitant]
     Route: 065
  6. IMOVANE [Concomitant]
     Route: 065
  7. EFFEXOR [Concomitant]
     Route: 065

REACTIONS (8)
  - RASH MACULO-PAPULAR [None]
  - HEADACHE [None]
  - HEPATOCELLULAR INJURY [None]
  - PYREXIA [None]
  - EOSINOPHILIA [None]
  - DRUG RASH WITH EOSINOPHILIA AND SYSTEMIC SYMPTOMS [None]
  - MYALGIA [None]
  - RENAL FAILURE [None]
